FAERS Safety Report 6607839-2 (Version None)
Quarter: 2010Q1

REPORT INFORMATION
  Report Type: 
  Country: None (occurrence: None)
  Receive Date: 20100225
  Receipt Date: 20100225
  Transmission Date: 20100710
  Serious: Yes (Hospitalization)
  Sender: FDA-Public Use
  Company Number: None

PATIENT
  Age: 81 Year
  Sex: Male

DRUGS (1)
  1. ZIPRASIDONE HCL [Suspect]
     Dosage: 20 MG EVERY DAY PO
     Route: 048
     Dates: start: 20070911, end: 20100219

REACTIONS (2)
  - BRADYCARDIA [None]
  - SYNCOPE [None]
